FAERS Safety Report 6151883-9 (Version None)
Quarter: 2009Q2

REPORT INFORMATION
  Report Type: 
  Country: None (occurrence: None)
  Receive Date: 20090408
  Receipt Date: 20090330
  Transmission Date: 20091009
  Serious: Yes (Death, Other)
  Sender: FDA-Public Use
  Company Number: 2002JP005556

PATIENT
  Age: 11 Year
  Sex: Male
  Weight: 39 kg

DRUGS (6)
  1. PROGRAF [Suspect]
     Indication: BONE MARROW TRANSPLANT
     Dosage: 1 MG, UNK; IV NOS, 1.3 MG, UNK, IV NOS, 1.1 MG, UNK, IV NOS, 0.825 MG, UNK; IV NOS;
     Route: 042
     Dates: start: 20020612, end: 20020613
  2. PROGRAF [Suspect]
     Indication: BONE MARROW TRANSPLANT
     Dosage: 1 MG, UNK; IV NOS, 1.3 MG, UNK, IV NOS, 1.1 MG, UNK, IV NOS, 0.825 MG, UNK; IV NOS;
     Route: 042
     Dates: start: 20020614, end: 20020616
  3. PROGRAF [Suspect]
     Indication: BONE MARROW TRANSPLANT
     Dosage: 1 MG, UNK; IV NOS, 1.3 MG, UNK, IV NOS, 1.1 MG, UNK, IV NOS, 0.825 MG, UNK; IV NOS;
     Route: 042
     Dates: start: 20020617, end: 20020621
  4. PROGRAF [Suspect]
     Indication: BONE MARROW TRANSPLANT
     Dosage: 1 MG, UNK; IV NOS, 1.3 MG, UNK, IV NOS, 1.1 MG, UNK, IV NOS, 0.825 MG, UNK; IV NOS;
     Route: 042
     Dates: start: 20020622, end: 20020703
  5. CARBENIN (PANIPENEM, BETAMIPRON) [Concomitant]
  6. METHYLPREDNISOLONE 16MG TAB [Concomitant]

REACTIONS (8)
  - ELECTROENCEPHALOGRAM ABNORMAL [None]
  - ENCEPHALOPATHY [None]
  - GRAFT VERSUS HOST DISEASE [None]
  - HYPONATRAEMIA [None]
  - INAPPROPRIATE ANTIDIURETIC HORMONE SECRETION [None]
  - LUNG INFECTION PSEUDOMONAL [None]
  - RENAL TUBULAR DISORDER [None]
  - TREMOR [None]
